FAERS Safety Report 8391061-6 (Version None)
Quarter: 2012Q2

REPORT INFORMATION
  Report Type: 
  Country: None (occurrence: None)
  Receive Date: 20120529
  Receipt Date: 20120518
  Transmission Date: 20120825
  Serious: Yes (Other)
  Sender: FDA-Public Use
  Company Number: US-JNJFOC-20120404359

PATIENT
  Sex: Female
  Weight: 99.34 kg

DRUGS (14)
  1. LISINOPRIL [Concomitant]
     Indication: BLOOD PRESSURE
     Route: 065
  2. REMICADE [Suspect]
     Route: 042
     Dates: start: 20111001
  3. TRICOR [Concomitant]
     Indication: BLOOD TRIGLYCERIDES
     Route: 065
  4. MAGNESIUM [Concomitant]
     Route: 065
  5. CALCIUM [Concomitant]
     Route: 065
  6. ALL OTHER THERAPEUTICS [Concomitant]
     Route: 065
  7. METHOTREXATE [Concomitant]
     Indication: ARTHRITIS
     Route: 065
  8. BIOTIN [Concomitant]
     Route: 065
  9. REMICADE [Suspect]
     Indication: PSORIATIC ARTHROPATHY
     Route: 042
     Dates: start: 20120321
  10. INSULIN [Concomitant]
     Route: 065
  11. HYDROCODONE BITARTRATE + ACETAMINOPHEN [Concomitant]
     Indication: PAIN
     Dosage: DOSE: 7.5/325
     Route: 065
  12. CELEXA [Concomitant]
     Indication: NERVOUSNESS
     Route: 065
  13. METHADONE HCL [Concomitant]
     Indication: PAIN
     Route: 065
  14. ZINC SULFATE [Concomitant]
     Route: 065

REACTIONS (5)
  - ALOPECIA [None]
  - DRUG EFFECT DECREASED [None]
  - ADVERSE DRUG REACTION [None]
  - MUSCULOSKELETAL STIFFNESS [None]
  - SURGERY [None]
